FAERS Safety Report 6399363-X (Version None)
Quarter: 2009Q4

REPORT INFORMATION
  Report Type: 
  Country: None (occurrence: None)
  Receive Date: 20091014
  Receipt Date: 20091009
  Transmission Date: 20100525
  Serious: Yes (Death)
  Sender: FDA-Public Use
  Company Number: US-CELGENEUS-163-20785-09100870

PATIENT
  Sex: Male

DRUGS (4)
  1. THALOMID [Suspect]
     Indication: MULTIPLE MYELOMA
     Route: 048
     Dates: start: 20090901
  2. THALOMID [Suspect]
     Route: 048
     Dates: start: 20071101, end: 20080601
  3. THALOMID [Suspect]
     Dosage: 50-100 MG
     Route: 048
     Dates: start: 20080601, end: 20081101
  4. REVLIMID [Suspect]
     Indication: MULTIPLE MYELOMA
     Route: 048
     Dates: start: 20090801

REACTIONS (1)
  - DEATH [None]
